FAERS Safety Report 16480475 (Version 8)
Quarter: 2020Q2

REPORT INFORMATION
  Report Type: Report from Study
  Country: US (occurrence: US)
  Receive Date: 20190626
  Receipt Date: 20200601
  Transmission Date: 20200713
  Serious: Yes (Other)
  Sender: FDA-Public Use
  Company Number: US-MALLINCKRODT-T201804782

PATIENT
  Sex: Female

DRUGS (16)
  1. REPOSITORY CORTICOTROPIN INJECTION [Suspect]
     Active Substance: CORTICOTROPIN
     Dosage: 40 UNITS/0.5 ML, 1 TIME WEEKLY (SUNDAY)
     Route: 058
  2. REPOSITORY CORTICOTROPIN INJECTION [Suspect]
     Active Substance: CORTICOTROPIN
     Dosage: 40 UNITS/1 ML
     Route: 065
  3. CELLCEPT [Concomitant]
     Active Substance: MYCOPHENOLATE MOFETIL\MYCOPHENOLATE MOFETIL HYDROCHLORIDE
     Indication: PRODUCT USED FOR UNKNOWN INDICATION
     Dosage: UNK
     Route: 065
  4. REPOSITORY CORTICOTROPIN INJECTION [Suspect]
     Active Substance: CORTICOTROPIN
     Dosage: 80 UNITS/1 ML, 1 TIME WEEKLY (SUNDAY)
     Route: 058
  5. PREDNISONE. [Concomitant]
     Active Substance: PREDNISONE
     Indication: PRODUCT USED FOR UNKNOWN INDICATION
     Dosage: UNK
     Route: 065
  6. PREDNISONE. [Concomitant]
     Active Substance: PREDNISONE
     Dosage: UNK, EVERY OTHER DAY
     Route: 065
  7. PREDNISONE. [Concomitant]
     Active Substance: PREDNISONE
     Dosage: UNK, ONCE A DAY
     Route: 065
  8. REPOSITORY CORTICOTROPIN INJECTION [Suspect]
     Active Substance: CORTICOTROPIN
     Dosage: 80 UNITS/1 ML, 1 TIME WEEKLY (SUNDAY)
     Route: 058
  9. PREDNISONE. [Concomitant]
     Active Substance: PREDNISONE
     Dosage: 5 MG, UNK
     Route: 065
  10. REPOSITORY CORTICOTROPIN INJECTION [Suspect]
     Active Substance: CORTICOTROPIN
     Dosage: 40 UNITS / 0.5 ML, 1 TIME WEEKLY, SUNDAY
     Route: 058
     Dates: start: 2019, end: 20200105
  11. REPOSITORY CORTICOTROPIN INJECTION [Suspect]
     Active Substance: CORTICOTROPIN
     Dosage: 80 UNITS / 1 ML, 1 TIME WEEKLY, SUNDAY
     Route: 058
     Dates: start: 2020, end: 20200209
  12. REPOSITORY CORTICOTROPIN INJECTION [Suspect]
     Active Substance: CORTICOTROPIN
     Dosage: 40 UNITS ONCE WEEKLY
     Route: 058
     Dates: start: 20200416
  13. PLAQUENIL [Suspect]
     Active Substance: HYDROXYCHLOROQUINE SULFATE
     Indication: PRODUCT USED FOR UNKNOWN INDICATION
     Dosage: UNK
     Route: 065
  14. BENLYSTA [Concomitant]
     Active Substance: BELIMUMAB
     Indication: PRODUCT USED FOR UNKNOWN INDICATION
     Route: 065
  15. REPOSITORY CORTICOTROPIN INJECTION [Suspect]
     Active Substance: CORTICOTROPIN
     Indication: SYSTEMIC LUPUS ERYTHEMATOSUS
     Dosage: 80 UNITS/1 ML, 1 TIME WEEKLY SUNDAY
     Route: 058
     Dates: start: 20180509
  16. REPOSITORY CORTICOTROPIN INJECTION [Suspect]
     Active Substance: CORTICOTROPIN
     Dosage: 80 UNITS/1 ML, 1 TIME WEEKLY SUNDAY
     Route: 058

REACTIONS (53)
  - Renal impairment [Not Recovered/Not Resolved]
  - Somnolence [Unknown]
  - Blood sodium increased [Unknown]
  - Pain [Unknown]
  - Depression [Unknown]
  - Hypertension [Not Recovered/Not Resolved]
  - Sciatica [Unknown]
  - Memory impairment [Unknown]
  - Back pain [Unknown]
  - Weight decreased [Unknown]
  - Sensitivity to weather change [Unknown]
  - Nervousness [Unknown]
  - Musculoskeletal pain [Unknown]
  - Fatigue [Unknown]
  - Hypoaesthesia [Unknown]
  - Neck pain [Unknown]
  - Abdominal pain upper [Not Recovered/Not Resolved]
  - Blood cholesterol abnormal [Unknown]
  - Muscle spasms [Unknown]
  - Polymenorrhoea [Unknown]
  - Influenza [Unknown]
  - Product dose omission [Unknown]
  - Papilloedema [Unknown]
  - Infection [Unknown]
  - Visual impairment [Unknown]
  - Immune system disorder [Unknown]
  - Gait disturbance [Unknown]
  - Chest pain [Unknown]
  - Vision blurred [Unknown]
  - Arthritis [Unknown]
  - Mental fatigue [Unknown]
  - Nausea [Unknown]
  - Dizziness [Unknown]
  - Mobility decreased [Unknown]
  - Vomiting [Unknown]
  - Muscular weakness [Unknown]
  - Blood uric acid increased [Unknown]
  - Hyperhidrosis [Unknown]
  - Menorrhagia [Unknown]
  - Eye haemorrhage [Unknown]
  - Systemic lupus erythematosus [Recovering/Resolving]
  - Heart rate increased [Unknown]
  - Proteinuria [Not Recovered/Not Resolved]
  - Pallor [Unknown]
  - Insomnia [Unknown]
  - Pain in extremity [Unknown]
  - Arthralgia [Unknown]
  - Stress [Unknown]
  - Anxiety [Unknown]
  - Malaise [Unknown]
  - Poisoning [Unknown]
  - Mood altered [Unknown]
  - Headache [Unknown]

NARRATIVE: CASE EVENT DATE: 2018
